FAERS Safety Report 25963678 (Version 2)
Quarter: 2025Q4

REPORT INFORMATION
  Report Type: Report from Study
  Country: US (occurrence: US)
  Receive Date: 20251027
  Receipt Date: 20251111
  Transmission Date: 20260117
  Serious: No
  Sender: BIOVITRUM
  Company Number: US-BIOVITRUM-2025-US-014646

PATIENT
  Age: 37 Year
  Sex: Female

DRUGS (1)
  1. KINERET [Suspect]
     Active Substance: ANAKINRA
     Indication: Rheumatoid arthritis
     Dosage: DAILY
     Route: 058
     Dates: start: 20241224

REACTIONS (1)
  - Drug ineffective [Unknown]
